FAERS Safety Report 7311376-X (Version None)
Quarter: 2011Q1

REPORT INFORMATION
  Report Type: 
  Country: None (occurrence: None)
  Receive Date: 20110216
  Receipt Date: 20110216
  Transmission Date: 20110831
  Serious: Yes (Hospitalization)
  Sender: FDA-Public Use
  Company Number: None

PATIENT
  Age: 38 Year
  Sex: Female
  Weight: 72.5755 kg

DRUGS (1)
  1. MIRENA [Suspect]
     Indication: CONTRACEPTION
     Dates: start: 20090601, end: 20110228

REACTIONS (5)
  - COMPLICATION OF DEVICE REMOVAL [None]
  - HAEMORRHAGE [None]
  - DIZZINESS [None]
  - PAIN [None]
  - PROCEDURAL PAIN [None]
